FAERS Safety Report 6264524-7 (Version None)
Quarter: 2009Q3

REPORT INFORMATION
  Report Type: 
  Country: None (occurrence: None)
  Receive Date: 20090710
  Receipt Date: 20090610
  Transmission Date: 20100115
  Serious: Yes (Hospitalization)
  Sender: FDA-Public Use
  Company Number: ES-JNJFOC-20090606831

PATIENT
  Age: 13 Year
  Sex: Male
  Weight: 60 kg

DRUGS (2)
  1. RISPERDAL [Suspect]
     Indication: AUTISM
     Route: 065
  2. OXCARBAZEPINE [Interacting]
     Indication: DISTURBANCE IN SOCIAL BEHAVIOUR

REACTIONS (4)
  - ACCIDENTAL EXPOSURE [None]
  - DRUG INTERACTION [None]
  - DRUG TOXICITY [None]
  - SOMNOLENCE [None]
